FAERS Safety Report 23387199 (Version 1)
Quarter: 2024Q1

REPORT INFORMATION
  Report Type: Spontaneous
  Country: NZ (occurrence: NZ)
  Receive Date: 20240110
  Receipt Date: 20240110
  Transmission Date: 20240410
  Serious: Yes (Hospitalization)
  Sender: FDA-Public Use
  Company Number: NZ-MYLANLABS-2024M1002534

PATIENT
  Age: 76 Year
  Sex: Female

DRUGS (14)
  1. DEXMEDETOMIDINE [Suspect]
     Active Substance: DEXMEDETOMIDINE
     Indication: Cancer pain
     Dosage: INFUSION 0.25 ML/HOUR (28 UG/ML), TITRATING TO 1 ML/HOUR OVER THE FIRST HOUR OF INFUSION. LATER IT W
     Route: 058
  2. PREGABALIN [Suspect]
     Active Substance: PREGABALIN
     Indication: Cancer pain
     Dosage: 150 MILLIGRAM, BID
     Route: 065
  3. FENTANYL [Suspect]
     Active Substance: FENTANYL\FENTANYL CITRATE
     Indication: Cancer pain
     Dosage: UNK
     Route: 065
  4. KETAMINE [Suspect]
     Active Substance: KETAMINE
     Indication: Cancer pain
     Dosage: 100 MILLIGRAM, INFUSION
     Route: 058
  5. KETAMINE [Suspect]
     Active Substance: KETAMINE
     Dosage: 300 MILLIGRAM, INFUSION
     Route: 058
  6. DEXAMETHASONE [Suspect]
     Active Substance: DEXAMETHASONE
     Indication: Cancer pain
     Dosage: 6 MILLIGRAM, QD
     Route: 065
  7. MORPHINE [Suspect]
     Active Substance: MORPHINE
     Indication: Cancer pain
     Dosage: UNK
     Route: 065
  8. METHADONE [Suspect]
     Active Substance: METHADONE HYDROCHLORIDE
     Indication: Cancer pain
     Dosage: 7.5 MILLIGRAM, TID, THREE TIMES A DAY
     Route: 048
  9. METHADONE [Suspect]
     Active Substance: METHADONE HYDROCHLORIDE
     Indication: Cancer pain
     Dosage: 7.5 MILLIGRAM, TID, INFUSION  3 TIMES A DAY
     Route: 058
  10. METHADONE [Suspect]
     Active Substance: METHADONE HYDROCHLORIDE
     Dosage: 25 MILLIGRAM, INFUSION
     Route: 058
  11. HALOPERIDOL [Concomitant]
     Active Substance: HALOPERIDOL
     Indication: Prophylaxis
     Dosage: UNK
     Route: 065
  12. LIDOCAINE [Concomitant]
     Active Substance: LIDOCAINE
     Indication: Cancer pain
     Dosage: 0.5 MILLIGRAM/KILOGRAM, QH
     Route: 065
  13. LIDOCAINE [Concomitant]
     Active Substance: LIDOCAINE
     Dosage: 2 MILLIGRAM/KILOGRAM, QH
     Route: 065
  14. MIDAZOLAM [Concomitant]
     Active Substance: MIDAZOLAM
     Indication: Cancer pain
     Dosage: 10 MILLIGRAM, INFUSION
     Route: 058

REACTIONS (9)
  - Cancer pain [Unknown]
  - Rebound effect [Unknown]
  - Hallucination, visual [Unknown]
  - Stupor [Recovered/Resolved]
  - Pallor [Recovered/Resolved]
  - Drug withdrawal syndrome [Recovered/Resolved]
  - Drug tolerance decreased [Unknown]
  - Medication error [Unknown]
  - Drug ineffective [Unknown]
